FAERS Safety Report 5690113-9 (Version None)
Quarter: 2008Q1

REPORT INFORMATION
  Report Type: 
  Country: None (occurrence: None)
  Receive Date: 20080331
  Receipt Date: 20080331
  Transmission Date: 20080703
  Serious: Yes (Other)
  Sender: FDA-Public Use
  Company Number: None

PATIENT
  Age: 12 Year
  Sex: Female
  Weight: 40.8237 kg

DRUGS (2)
  1. SINGULAIR [Suspect]
     Indication: ASTHMA
     Dosage: 10MG AT HS PO
     Route: 048
     Dates: start: 19990922, end: 20050125
  2. SINGULAIR [Suspect]
     Indication: MULTIPLE ALLERGIES
     Dosage: 10MG AT HS PO
     Route: 048
     Dates: start: 19990922, end: 20050125

REACTIONS (7)
  - ABNORMAL BEHAVIOUR [None]
  - AFFECTIVE DISORDER [None]
  - DEPRESSION [None]
  - EMOTIONAL DISORDER [None]
  - FAILURE TO THRIVE [None]
  - SELF INJURIOUS BEHAVIOUR [None]
  - SOCIAL PROBLEM [None]
